FAERS Safety Report 12369183 (Version 1)
Quarter: 2016Q2

REPORT INFORMATION
  Report Type: Spontaneous
  Country: US (occurrence: US)
  Receive Date: 20160513
  Receipt Date: 20160513
  Transmission Date: 20160815
  Serious: Yes (Hospitalization, Other)
  Sender: FDA-Public Use
  Company Number: US-BAYER-2016-087273

PATIENT
  Age: 25 Year
  Sex: Female
  Weight: 78.9 kg

DRUGS (5)
  1. PYRIDIUM [Suspect]
     Active Substance: PHENAZOPYRIDINE
     Dosage: UNK
  2. PARAFON FORTE [Suspect]
     Active Substance: CHLORZOXAZONE
     Dosage: 500 MG, QD
  3. IBUPROFEN. [Suspect]
     Active Substance: IBUPROFEN
     Dosage: UNK UNK, TID
  4. CIPRO [Suspect]
     Active Substance: CIPROFLOXACIN HYDROCHLORIDE
     Indication: URINARY TRACT INFECTION
     Dosage: UNK
     Dates: start: 20160216, end: 20160223
  5. MILNACIPRAN HYDROCHLORIDE. [Suspect]
     Active Substance: MILNACIPRAN HYDROCHLORIDE
     Dosage: 12.5 MG, BID

REACTIONS (1)
  - Acute hepatic failure [Recovering/Resolving]
